FAERS Safety Report 5345678-3 (Version None)
Quarter: 2007Q2

REPORT INFORMATION
  Report Type: 
  Country: None (occurrence: None)
  Receive Date: 20070430
  Receipt Date: 20070119
  Transmission Date: 20071010
  Serious: No
  Sender: FDA-Public Use
  Company Number: 260179

PATIENT
  Age: 37 Year
  Sex: Female
  Weight: 142.9 kg

DRUGS (1)
  1. LEVEMIR [Suspect]
     Indication: BLOOD INSULIN
     Dosage: 10 IU, QD, SUBCUTANEOUS
     Route: 058
     Dates: start: 20070117

REACTIONS (2)
  - HYPERSENSITIVITY [None]
  - UNDERDOSE [None]
